FAERS Safety Report 25384893 (Version 1)
Quarter: 2025Q2

REPORT INFORMATION
  Report Type: Spontaneous
  Country: US (occurrence: None)
  Receive Date: 20250530
  Receipt Date: 20250530
  Transmission Date: 20250716
  Serious: Yes (Hospitalization)
  Sender: FDA-CTU
  Company Number: None

PATIENT
  Sex: Female

DRUGS (11)
  1. DALFAMPRIDINE [Suspect]
     Active Substance: DALFAMPRIDINE
     Indication: Multiple sclerosis
     Dosage: FREQUENCY : TWICE A DAY;?
     Route: 048
     Dates: start: 20181012
  2. AMLODIPINE TAB [Concomitant]
  3. AMPYRA TAB [Concomitant]
  4. BACLOFEN [Concomitant]
     Active Substance: BACLOFEN
  5. CLONAZEPAM [Concomitant]
     Active Substance: CLONAZEPAM
  6. COLON HERBAL CAP CLEANSER [Concomitant]
  7. REBIF [Concomitant]
     Active Substance: INTERFERON BETA-1A
  8. ITAGRISSO TAB [Concomitant]
  9. TIMOLOL MALE SOL 0.5% [Concomitant]
  10. TRAMADOL HCL TAB [Concomitant]
  11. ESICARE TAB [Concomitant]

REACTIONS (2)
  - Fall [None]
  - Movement disorder [None]
